FAERS Safety Report 5365500-9 (Version None)
Quarter: 2007Q2

REPORT INFORMATION
  Report Type: 
  Country: None (occurrence: None)
  Receive Date: 20070611
  Receipt Date: 20040927
  Transmission Date: 20071010
  Serious: Yes (Death, Other)
  Sender: FDA-Public Use
  Company Number: USA-2004-0025547

PATIENT
  Age: 27 Year
  Sex: Male
  Weight: 74.8 kg

DRUGS (6)
  1. OXYCONTIN [Suspect]
     Indication: DRUG ABUSER
     Dosage: SEE TEXT
  2. COCAINE (COCAINE) [Suspect]
     Indication: DRUG ABUSER
     Dosage: SEE TEXT
  3. METHADONE HCL [Suspect]
     Indication: DRUG ABUSER
     Dosage: SEE TEXT
  4. DIPHENHYDRAMINE HCL [Suspect]
     Indication: DRUG ABUSER
  5. BENZODIAZEPINE DERIVATIVES [Suspect]
     Indication: DRUG ABUSER
     Dosage: SEE TEXT
  6. OPIOIDS [Suspect]
     Indication: DRUG ABUSER
     Dosage: SEE TEXT

REACTIONS (5)
  - MULTIPLE DRUG OVERDOSE ACCIDENTAL [None]
  - RESPIRATORY ARREST [None]
  - SUBSTANCE ABUSE [None]
  - UNRESPONSIVE TO STIMULI [None]
  - VOMITING [None]
